FAERS Safety Report 9453467 (Version 1)
Quarter: 2013Q3

REPORT INFORMATION
  Report Type: Spontaneous
  Country: US (occurrence: US)
  Receive Date: 20130812
  Receipt Date: 20130812
  Transmission Date: 20140515
  Serious: Yes (Other)
  Sender: FDA-Public Use
  Company Number: US-009507513-1207USA012109

PATIENT
  Age: 60 Year
  Sex: Female
  Weight: 91.61 kg

DRUGS (2)
  1. DULERA [Suspect]
     Indication: ASTHMA
     Dosage: 1 PUFF PER DAY 100/5MCG APPROX
     Route: 055
     Dates: start: 20120515, end: 20120610
  2. PROAIR (FLUTICASONE PROPIONATE) [Concomitant]
     Dosage: 1 PUFF EVERY 3-4 DAYS, AS NEEDED BASIS
     Route: 055

REACTIONS (4)
  - Depression [Recovered/Resolved]
  - Anxiety [Recovered/Resolved]
  - Increased appetite [Recovered/Resolved]
  - Weight increased [Recovered/Resolved]
